FAERS Safety Report 12474500 (Version 1)
Quarter: 2016Q2

REPORT INFORMATION
  Report Type: Spontaneous
  Country: US (occurrence: US)
  Receive Date: 20160617
  Receipt Date: 20160617
  Transmission Date: 20160815
  Serious: No
  Sender: FDA-Public Use
  Company Number: US-ALVOGEN-2016-ALVOGEN-022575

PATIENT
  Age: 86 Year
  Sex: Male

DRUGS (4)
  1. RIVASTIGMINE. [Suspect]
     Active Substance: RIVASTIGMINE
     Indication: FRONTOTEMPORAL DEMENTIA
     Route: 062
     Dates: start: 20160202
  2. RIVASTIGMINE. [Suspect]
     Active Substance: RIVASTIGMINE
     Indication: FRONTOTEMPORAL DEMENTIA
     Route: 062
  3. RIVASTIGMINE. [Suspect]
     Active Substance: RIVASTIGMINE
     Indication: FRONTOTEMPORAL DEMENTIA
     Route: 062
  4. RIVASTIGMINE. [Suspect]
     Active Substance: RIVASTIGMINE
     Indication: FRONTOTEMPORAL DEMENTIA
     Dosage: 4.6MG/24 HOURS
     Route: 062
     Dates: end: 20160302

REACTIONS (3)
  - Application site rash [Recovered/Resolved]
  - Application site erythema [Recovered/Resolved]
  - Application site pruritus [Recovered/Resolved]
